FAERS Safety Report 6439091-5 (Version None)
Quarter: 2009Q4

REPORT INFORMATION
  Report Type: 
  Country: None (occurrence: None)
  Receive Date: 20091113
  Receipt Date: 20090506
  Transmission Date: 20100525
  Serious: Yes (Other)
  Sender: FDA-Public Use
  Company Number: US-PFIZER INC-2009211135

PATIENT
  Sex: Female

DRUGS (3)
  1. PREMPHASE 14/14 [Suspect]
     Indication: HORMONE REPLACEMENT THERAPY
     Dosage: 0.625-5 MG, UNK
     Dates: start: 19970513, end: 20000320
  2. PREMPHASE 14/14 [Suspect]
     Indication: MENOPAUSAL SYMPTOMS
  3. PREMPRO [Suspect]
     Indication: HORMONE REPLACEMENT THERAPY
     Dosage: 0.625-2.5 MG, UNK
     Dates: start: 20000918, end: 20010601

REACTIONS (1)
  - BREAST CANCER [None]
